FAERS Safety Report 4739013-9 (Version None)
Quarter: 2005Q3

REPORT INFORMATION
  Report Type: 
  Country: None (occurrence: None)
  Receive Date: 20050801
  Receipt Date: 20050419
  Transmission Date: 20060218
  Serious: Yes (Hospitalization)
  Sender: FDA-Public Use
  Company Number: 141892USA

PATIENT
  Age: 40 Year
  Sex: Female

DRUGS (1)
  1. MEDROXYPROGESTERONE ACETATE [Suspect]
     Dosage: 150 MG/ML ONCE, INTRAMUSCULAR
     Route: 030
     Dates: start: 20050418, end: 20050418

REACTIONS (4)
  - BURNING SENSATION [None]
  - DYSPNOEA [None]
  - RASH [None]
  - URTICARIA [None]
